FAERS Safety Report 6761073-4 (Version None)
Quarter: 2010Q2

REPORT INFORMATION
  Report Type: 
  Country: None (occurrence: None)
  Receive Date: 20100608
  Receipt Date: 20100601
  Transmission Date: 20101027
  Serious: Yes (Other)
  Sender: FDA-Public Use
  Company Number: B0659302A

PATIENT
  Sex: Male
  Weight: 60 kg

DRUGS (2)
  1. LAMICTAL [Suspect]
     Indication: DEPRESSION
     Dosage: 200MG PER DAY
     Route: 065
     Dates: start: 20060901, end: 20100423
  2. PRIADEL [Concomitant]
     Dosage: 400MG TWICE PER DAY
     Dates: start: 20060630

REACTIONS (3)
  - AGITATION [None]
  - DRUG WITHDRAWAL SYNDROME [None]
  - MYALGIA [None]
